FAERS Safety Report 5022319-6 (Version None)
Quarter: 2006Q2

REPORT INFORMATION
  Report Type: 
  Country: None (occurrence: None)
  Receive Date: 20060605
  Receipt Date: 20060522
  Transmission Date: 20061013
  Serious: Yes (Hospitalization, Other)
  Sender: FDA-Public Use
  Company Number: 2006066229

PATIENT
  Age: 54 Year
  Sex: Female

DRUGS (3)
  1. CELEBREX [Suspect]
     Indication: FACIAL PALSY
     Dosage: (200 MG),ORAL
     Route: 048
     Dates: start: 20040901, end: 20041001
  2. BENERVA (THIAMINE HYDROCHLORIDE) [Concomitant]
  3. ALL OTHER THERAPEUTIC PRODUCTS (ALL OTHER THERAPEUTIC PRODUCTS) [Concomitant]

REACTIONS (12)
  - ARRHYTHMIA [None]
  - CEREBROVASCULAR ACCIDENT [None]
  - EPISTAXIS [None]
  - FACIAL PALSY [None]
  - HAEMATOMA [None]
  - HYPERTENSION [None]
  - LUNG DISORDER [None]
  - MALAISE [None]
  - MYOCARDIAL INFARCTION [None]
  - NOSOCOMIAL INFECTION [None]
  - PLATELET COUNT DECREASED [None]
  - TACHYCARDIA [None]
